FAERS Safety Report 5008553-X (Version None)
Quarter: 2006Q2

REPORT INFORMATION
  Report Type: 
  Country: None (occurrence: None)
  Receive Date: 20060518
  Receipt Date: 20060505
  Transmission Date: 20061013
  Serious: Yes (Hospitalization, Other)
  Sender: FDA-Public Use
  Company Number: HQWYE205808MAY06

PATIENT
  Age: 60 Year
  Sex: Male

DRUGS (1)
  1. RAPAMUNE [Suspect]
     Indication: PROPHYLAXIS AGAINST TRANSPLANT REJECTION
     Dates: start: 20050825, end: 20051109

REACTIONS (3)
  - IMMUNOSUPPRESSION [None]
  - NEPHRECTOMY [None]
  - RENAL CELL CARCINOMA STAGE I [None]
